FAERS Safety Report 17679884 (Version 1)
Quarter: 2020Q2

REPORT INFORMATION
  Report Type: Report from Study
  Country: US (occurrence: US)
  Receive Date: 20200417
  Receipt Date: 20200417
  Transmission Date: 20200714
  Serious: Yes (Hospitalization, Other)
  Sender: FDA-Public Use
  Company Number: US-MYLANLABS-2019M1127043

PATIENT
  Age: 34 Year
  Sex: Female
  Weight: 145 kg

DRUGS (2)
  1. GLATIRAMER ACETATE INJECTION [Suspect]
     Active Substance: GLATIRAMER ACETATE
     Dosage: 40 MILLIGRAM, 3XW
  2. GLATIRAMER ACETATE INJECTION [Suspect]
     Active Substance: GLATIRAMER ACETATE
     Indication: RELAPSING-REMITTING MULTIPLE SCLEROSIS
     Dosage: 40 MILLIGRAM, 3XW
     Route: 058

REACTIONS (17)
  - Vomiting [Unknown]
  - Fatigue [Unknown]
  - Dyspnoea [Unknown]
  - Dizziness [Unknown]
  - Tremor [Unknown]
  - Feeling hot [Unknown]
  - Eructation [Unknown]
  - Urticaria [Unknown]
  - Abdominal pain upper [Unknown]
  - Malaise [Unknown]
  - Chest pain [Unknown]
  - Anxiety [Unknown]
  - Premenstrual pain [Unknown]
  - Diarrhoea [Unknown]
  - Rash erythematous [Unknown]
  - Dyspepsia [Unknown]
  - Influenza like illness [Unknown]

NARRATIVE: CASE EVENT DATE: 20200408
